FAERS Safety Report 4714769-X (Version None)
Quarter: 2005Q3

REPORT INFORMATION
  Report Type: 
  Country: None (occurrence: None)
  Receive Date: 20050713
  Receipt Date: 20050705
  Transmission Date: 20060218
  Serious: Yes (Hospitalization)
  Sender: FDA-Public Use
  Company Number: 050045

PATIENT
  Age: 61 Year
  Sex: Female
  Weight: 55.3388 kg

DRUGS (7)
  1. HALFLYTELY [Suspect]
     Indication: COLONOSCOPY
     Dosage: 20 MG/2L, 1X, PO
     Route: 048
  2. PREVACID [Concomitant]
  3. COZAAR [Concomitant]
  4. XANAX [Concomitant]
  5. ESTRACE [Concomitant]
  6. CALCIUM GLUCONATE [Concomitant]
  7. EFFEXOR [Concomitant]

REACTIONS (7)
  - HYPOKALAEMIA [None]
  - HYPOMAGNESAEMIA [None]
  - HYPONATRAEMIA [None]
  - HYPOTENSION [None]
  - LOSS OF CONSCIOUSNESS [None]
  - SYNCOPE [None]
  - WHITE BLOOD CELL COUNT INCREASED [None]
